FAERS Safety Report 16462965 (Version 1)
Quarter: 2019Q2

REPORT INFORMATION
  Report Type: Spontaneous
  Country: RU (occurrence: RU)
  Receive Date: 20190621
  Receipt Date: 20190621
  Transmission Date: 20190711
  Serious: Yes (Death)
  Sender: FDA-Public Use
  Company Number: RU-ROCHE-2342103

PATIENT
  Age: 71 Year
  Sex: Male

DRUGS (1)
  1. TECENTRIQ [Suspect]
     Active Substance: ATEZOLIZUMAB
     Indication: METASTATIC CARCINOMA OF THE BLADDER
     Route: 065

REACTIONS (1)
  - Death [Fatal]
